FAERS Safety Report 8432977-1 (Version None)
Quarter: 2012Q2

REPORT INFORMATION
  Report Type: 
  Country: None (occurrence: None)
  Receive Date: 20120613
  Receipt Date: 20120604
  Transmission Date: 20120825
  Serious: Yes (Other)
  Sender: FDA-Public Use
  Company Number: BR-ASTRAZENECA-2012SE37842

PATIENT
  Age: 53 Year
  Sex: Male

DRUGS (1)
  1. ATACAND HCT [Suspect]
     Dosage: 16/12.5 MG
     Route: 048

REACTIONS (3)
  - DIABETES MELLITUS [None]
  - SOMNOLENCE [None]
  - ASTHENIA [None]
